FAERS Safety Report 5058490-X (Version None)
Quarter: 2006Q3

REPORT INFORMATION
  Report Type: 
  Country: None (occurrence: None)
  Receive Date: 20060721
  Receipt Date: 20060713
  Transmission Date: 20061208
  Serious: Yes (Life-Threatening, Other)
  Sender: FDA-Public Use
  Company Number: DK-ABBOTT-06P-044-0337984-00

PATIENT
  Sex: Male
  Weight: 80 kg

DRUGS (12)
  1. KLACID I.V. [Suspect]
     Indication: PNEUMONIA LEGIONELLA
     Route: 042
     Dates: start: 20060707
  2. FLUCONAZOLE [Interacting]
     Indication: FUNGAL INFECTION
     Dosage: INFUSION
     Route: 042
     Dates: start: 20060710, end: 20060710
  3. AMIODARONE HYDROCHLORIDE [Concomitant]
     Indication: ATRIAL FIBRILLATION
     Dosage: INFUSION
     Route: 042
     Dates: start: 20060707
  4. AMIODARONE HYDROCHLORIDE [Concomitant]
     Indication: PROPHYLAXIS
  5. CIPROFLOXACIN LACTATE [Concomitant]
     Indication: PNEUMONIA LEGIONELLA
     Dosage: INFUSION
     Route: 042
     Dates: start: 20060707
  6. TAXOCIN [Concomitant]
     Indication: PNEUMONIA LEGIONELLA
     Dosage: INFUSION
     Route: 042
     Dates: start: 20060707
  7. HEPARIN [Concomitant]
     Indication: DRUG USE FOR UNKNOWN INDICATION
     Dosage: INFUSION 1500 IE
     Route: 042
  8. NONADRENALINE INFUSION [Concomitant]
     Indication: DRUG USE FOR UNKNOWN INDICATION
     Route: 042
  9. DOBUTAMINE HCL [Concomitant]
     Indication: DRUG USE FOR UNKNOWN INDICATION
     Dosage: INFUSION
     Route: 042
  10. DORMICUM [Concomitant]
     Indication: DRUG USE FOR UNKNOWN INDICATION
  11. FENTANYL TRANSDERMAL SYSTEM [Concomitant]
     Indication: DRUG USE FOR UNKNOWN INDICATION
  12. PANTOPRAZOLE SODIUM [Concomitant]
     Indication: DRUG USE FOR UNKNOWN INDICATION

REACTIONS (5)
  - BUNDLE BRANCH BLOCK [None]
  - CARDIAC ARREST [None]
  - DRUG INTERACTION [None]
  - FUNGAL INFECTION [None]
  - VENTRICULAR FIBRILLATION [None]
